FAERS Safety Report 7791081-6 (Version None)
Quarter: 2011Q4

REPORT INFORMATION
  Report Type: 
  Country: None (occurrence: None)
  Receive Date: 20111003
  Receipt Date: 20110922
  Transmission Date: 20120403
  Serious: No
  Sender: FDA-Public Use
  Company Number: US-BIOGENIDEC-2011BI001371

PATIENT
  Sex: Female

DRUGS (5)
  1. TEGRETOL [Concomitant]
     Indication: TRIGEMINAL NEURALGIA
     Dates: start: 20070101
  2. TYSABRI [Suspect]
     Indication: MULTIPLE SCLEROSIS
     Route: 042
     Dates: start: 20080122
  3. TEGRETOL [Concomitant]
     Indication: CONVULSION
     Dates: start: 20070101
  4. CIPRO EAR DROPS [Concomitant]
     Indication: TRIGEMINAL NEURALGIA
  5. EAR DROPS (NOS) [Concomitant]
     Indication: TRIGEMINAL NEURALGIA

REACTIONS (14)
  - MORTON'S NEUROMA [None]
  - ARTHRALGIA [None]
  - PAIN IN EXTREMITY [None]
  - MELANOCYTIC NAEVUS [None]
  - FALL [None]
  - NECK PAIN [None]
  - FRACTURED ISCHIUM [None]
  - HIP FRACTURE [None]
  - URINARY TRACT INFECTION [None]
  - CONTUSION [None]
  - MUSCULAR WEAKNESS [None]
  - MUSCLE SPASMS [None]
  - MUSCLE STRAIN [None]
  - MIDDLE INSOMNIA [None]
